FAERS Safety Report 5817700-9 (Version None)
Quarter: 2008Q3

REPORT INFORMATION
  Report Type: 
  Country: None (occurrence: None)
  Receive Date: 20080722
  Receipt Date: 20080714
  Transmission Date: 20090109
  Serious: Yes (Other)
  Sender: FDA-Public Use
  Company Number: PHHY2008BR13881

PATIENT
  Sex: Male
  Weight: 77 kg

DRUGS (8)
  1. SLOW-K [Suspect]
     Indication: MUSCLE SPASMS
     Dosage: 600 MG
     Dates: start: 20080610
  2. SLOW-K [Suspect]
     Dosage: 1 TABLET AT LUNCH
     Dates: start: 20080501
  3. MODURETIC 5-50 [Concomitant]
     Indication: HYPERTENSION
     Dosage: 1 TABLET AT LUNCH
  4. BALCOR [Concomitant]
     Indication: HEART RATE INCREASED
     Dosage: 1 TABLET IN MORNING
  5. METICORTEN [Concomitant]
     Indication: PLATELET COUNT DECREASED
     Dosage: 1 AND HALF TABLET IN MORNING.
  6. UNOPROST [Concomitant]
     Indication: DYSURIA
     Dosage: UNK
     Route: 048
     Dates: start: 20080301
  7. PANTOPRAZOLE SODIUM [Concomitant]
  8. METFORMIN HYDROCHLORIDE [Concomitant]

REACTIONS (5)
  - ABDOMINAL PAIN UPPER [None]
  - HUNGER [None]
  - HYPERPHAGIA [None]
  - MUSCLE SPASMS [None]
  - PLATELET COUNT DECREASED [None]
